FAERS Safety Report 8777863 (Version 5)
Quarter: 2012Q4

REPORT INFORMATION
  Report Type: 
  Country: US (occurrence: US)
  Receive Date: 20120911
  Receipt Date: 20121206
  Transmission Date: 20130627
  Serious: Yes (Other)
  Sender: FDA-Public Use
  Company Number: PHEH2012US012668

PATIENT
  Age: 4 Year
  Sex: Female

DRUGS (5)
  1. AFINITOR [Suspect]
     Dosage: 5 mg, daily
     Route: 048
     Dates: start: 20120504, end: 20120621
  2. AFINITOR [Suspect]
     Dosage: 5 mg, daily
     Route: 048
     Dates: start: 20120811
  3. AFINITOR [Suspect]
     Dosage: 5 mg, daily
     Route: 048
     Dates: start: 20120925
  4. AFINITOR [Suspect]
     Dosage: 7.5 mg, daily
     Route: 048
     Dates: start: 20121109
  5. LAMICTAL [Concomitant]

REACTIONS (7)
  - Lymphangioleiomyomatosis [Recovered/Resolved]
  - Convulsion [Not Recovered/Not Resolved]
  - Medical device complication [Unknown]
  - Pertussis [Recovered/Resolved]
  - Ear infection [Recovered/Resolved]
  - Staphylococcal infection [Recovered/Resolved]
  - Cough [Recovered/Resolved]
